FAERS Safety Report 9704875 (Version 1)
Quarter: 2013Q4

REPORT INFORMATION
  Report Type: Spontaneous
  Country: CA (occurrence: CA)
  Receive Date: 20131122
  Receipt Date: 20131122
  Transmission Date: 20140711
  Serious: Yes (Other)
  Sender: FDA-Public Use
  Company Number: CA-BAXTER-2013BAX044982

PATIENT
  Sex: 0

DRUGS (2)
  1. 5% DEXTROSE INJECTION [Suspect]
     Indication: MEDICATION DILUTION
     Dosage: 50 MG/100 ML
     Route: 065
     Dates: start: 20131002
  2. 5-FU [Suspect]
     Indication: CHEMOTHERAPY
     Dosage: 50 MG/100 ML
     Route: 042
     Dates: start: 20131002

REACTIONS (4)
  - Overdose [Unknown]
  - White blood cell count decreased [Unknown]
  - Device infusion issue [Unknown]
  - Wrong technique in drug usage process [Unknown]
